FAERS Safety Report 23301256 (Version 1)
Quarter: 2023Q4

REPORT INFORMATION
  Report Type: Spontaneous
  Country: JP (occurrence: JP)
  Receive Date: 20231215
  Receipt Date: 20231215
  Transmission Date: 20240110
  Serious: Yes (Death, Hospitalization, Other)
  Sender: FDA-Public Use
  Company Number: JP-PFIZER INC-PV202300201340

PATIENT
  Age: 88 Year
  Sex: Male

DRUGS (3)
  1. METHYLPREDNISOLONE [Suspect]
     Active Substance: METHYLPREDNISOLONE
     Indication: COVID-19
     Dosage: 500 MG, DAILY (EIGHT MONTHS BEFORE ADMISSION)
  2. METHYLPREDNISOLONE [Suspect]
     Active Substance: METHYLPREDNISOLONE
     Indication: Idiopathic interstitial pneumonia
     Dosage: 500 MG, DAILY (THREE MONTHS BEFORE ADMISSION)
  3. PREDNISOLONE [Suspect]
     Active Substance: PREDNISOLONE
     Indication: Idiopathic interstitial pneumonia
     Route: 048

REACTIONS (1)
  - Disseminated cryptococcosis [Fatal]
